FAERS Safety Report 5990331-6 (Version None)
Quarter: 2008Q4

REPORT INFORMATION
  Report Type: 
  Country: None (occurrence: None)
  Receive Date: 20081211
  Receipt Date: 20081204
  Transmission Date: 20090506
  Serious: Yes (Life-Threatening, Hospitalization, Other)
  Sender: FDA-Public Use
  Company Number: FR-CELGENEUS-056-CCAZA-08120431

PATIENT
  Sex: Female
  Weight: 60 kg

DRUGS (5)
  1. AZACITIDINE [Suspect]
     Indication: ACUTE MYELOID LEUKAEMIA
     Route: 058
     Dates: start: 20080401, end: 20080401
  2. AZACITIDINE [Suspect]
     Route: 058
     Dates: start: 20070601, end: 20070601
  3. AZACITIDINE [Suspect]
     Route: 058
     Dates: start: 20070501, end: 20070501
  4. RETINOIC ACID [Concomitant]
     Indication: DRUG USE FOR UNKNOWN INDICATION
     Route: 065
  5. DEPAKENE [Concomitant]
     Indication: DRUG USE FOR UNKNOWN INDICATION
     Route: 065

REACTIONS (1)
  - APLASIA [None]
